FAERS Safety Report 18067972 (Version 1)
Quarter: 2020Q3

REPORT INFORMATION
  Report Type: Spontaneous
  Country: NP (occurrence: NP)
  Receive Date: 20200725
  Receipt Date: 20200725
  Transmission Date: 20201103
  Serious: Yes (Hospitalization, Other)
  Sender: FDA-Public Use
  Company Number: NP-NOVITIUMPHARMA-2020NPNVP00001

PATIENT
  Age: 33 Year
  Sex: Male

DRUGS (3)
  1. INSULIN [Concomitant]
     Active Substance: INSULIN NOS
  2. ACETAZOLAMIDE. [Suspect]
     Active Substance: ACETAZOLAMIDE
     Indication: DYSPNOEA
  3. ACETAZOLAMIDE. [Suspect]
     Active Substance: ACETAZOLAMIDE
     Indication: MENTAL STATUS CHANGES
     Dosage: TOOK 8 TABLETS

REACTIONS (3)
  - Diabetic ketoacidosis [Recovering/Resolving]
  - Shock [Recovering/Resolving]
  - Overdose [Unknown]
